FAERS Safety Report 8224022-8 (Version None)
Quarter: 2012Q1

REPORT INFORMATION
  Report Type: 
  Country: None (occurrence: None)
  Receive Date: 20120321
  Receipt Date: 20120313
  Transmission Date: 20120608
  Serious: Yes (Life-Threatening, Hospitalization)
  Sender: FDA-Public Use
  Company Number: JP-GENZYME-THYM-1003170

PATIENT
  Age: 10 Year
  Sex: Female
  Weight: 34 kg

DRUGS (17)
  1. DEFERASIROX [Concomitant]
     Indication: RENAL IMPAIRMENT
     Dosage: UNK
     Route: 065
     Dates: start: 20110228
  2. ACYCLOVIR [Concomitant]
     Indication: INFECTION PROPHYLAXIS
     Dosage: UNK
     Route: 065
     Dates: start: 20110520
  3. FILGRASTIM [Concomitant]
     Indication: APLASTIC ANAEMIA
     Dosage: UNK
     Route: 065
     Dates: start: 20110305, end: 20110513
  4. CYCLOPHOSPHAMIDE [Concomitant]
     Indication: BONE MARROW CONDITIONING REGIMEN
     Dosage: UNK
     Route: 065
     Dates: start: 20110318, end: 20110321
  5. TACROLIMUS [Concomitant]
     Indication: PROPHYLAXIS AGAINST GRAFT VERSUS HOST DISEASE
     Dosage: UNK
     Route: 065
     Dates: start: 20110326, end: 20110623
  6. RED BLOOD CELLS, CONCENTRATED [Concomitant]
     Indication: APLASTIC ANAEMIA
     Dosage: UNK
     Route: 065
     Dates: start: 20110305
  7. METHOTREXATE [Concomitant]
     Indication: PROPHYLAXIS AGAINST GRAFT VERSUS HOST DISEASE
     Dosage: UNK
     Route: 065
     Dates: start: 20110326, end: 20110404
  8. METHYLPREDNISOLONE SODIUM SUCCINATE [Concomitant]
     Indication: PREMEDICATION
     Dosage: UNK
     Route: 065
     Dates: start: 20110318, end: 20110321
  9. FLUDARA [Suspect]
     Indication: BONE MARROW CONDITIONING REGIMEN
     Dosage: UNK
     Route: 065
     Dates: start: 20110318, end: 20110321
  10. ACETAMINOPHEN [Concomitant]
     Indication: PREMEDICATION
     Dosage: UNK
     Route: 065
     Dates: start: 20110318, end: 20110321
  11. THYMOGLOBULIN [Suspect]
     Indication: BONE MARROW CONDITIONING REGIMEN
     Dosage: 85 MG, QD
     Route: 042
     Dates: start: 20110318, end: 20110321
  12. MICAFUNGIN SODIUM [Concomitant]
     Indication: INFECTION PROPHYLAXIS
     Dosage: UNK
     Route: 065
     Dates: start: 20110318
  13. METHOTREXATE [Concomitant]
     Dosage: UNK
     Route: 065
     Dates: start: 20110701, end: 20110710
  14. SULFAMETHOPRIM [Concomitant]
     Indication: INFECTION PROPHYLAXIS
     Dosage: UNK
     Route: 065
     Dates: start: 20110228
  15. CEFTAZIDIME [Concomitant]
     Indication: INFECTION PROPHYLAXIS
     Dosage: UNK
     Route: 065
     Dates: start: 20110305, end: 20110510
  16. CEFTAZIDIME [Concomitant]
     Dosage: UNK
     Route: 065
     Dates: start: 20110710
  17. PLATELETS [Concomitant]
     Indication: APLASTIC ANAEMIA
     Dosage: UNK
     Route: 065
     Dates: start: 20110317

REACTIONS (4)
  - CARDIAC FAILURE [None]
  - ACUTE GRAFT VERSUS HOST DISEASE IN SKIN [None]
  - PULMONARY HYPERTENSION [None]
  - POST TRANSPLANT LYMPHOPROLIFERATIVE DISORDER [None]
